FAERS Safety Report 13040726 (Version 1)
Quarter: 2016Q4

REPORT INFORMATION
  Report Type: Spontaneous
  Country: US (occurrence: US)
  Receive Date: 20161219
  Receipt Date: 20161219
  Transmission Date: 20170207
  Serious: Yes (Other)
  Sender: FDA-Public Use
  Company Number: US-PFIZER INC-2016572657

PATIENT
  Sex: Female

DRUGS (1)
  1. XANAX [Suspect]
     Active Substance: ALPRAZOLAM
     Dosage: 1 DF, 1X/DAY

REACTIONS (5)
  - Post-traumatic stress disorder [Unknown]
  - Intentional product use issue [Unknown]
  - Anxiety [Unknown]
  - Angina pectoris [Unknown]
  - Panic attack [Unknown]
